FAERS Safety Report 5733867-5 (Version None)
Quarter: 2008Q2

REPORT INFORMATION
  Report Type: 
  Country: None (occurrence: None)
  Receive Date: 20080509
  Receipt Date: 20080430
  Transmission Date: 20081010
  Serious: Yes (Disabling)
  Sender: FDA-Public Use
  Company Number: US-ELI_LILLY_AND_COMPANY-US200805000065

PATIENT
  Sex: Female
  Weight: 88.435 kg

DRUGS (7)
  1. BYETTA [Suspect]
     Indication: TYPE 2 DIABETES MELLITUS
     Dosage: 5 UG, DAILY (1/D)
     Route: 058
     Dates: start: 20060101
  2. BYETTA [Suspect]
     Dosage: 5 UG, 2/M
     Route: 058
     Dates: start: 20060101
  3. GLYBURIDE [Concomitant]
     Indication: TYPE 2 DIABETES MELLITUS
     Dosage: UNK, UNKNOWN
  4. ACTOS [Concomitant]
     Indication: TYPE 2 DIABETES MELLITUS
     Dosage: UNK, UNKNOWN
  5. METFORMIN HCL [Concomitant]
     Indication: TYPE 2 DIABETES MELLITUS
     Dosage: UNK, UNKNOWN
  6. PLAVIX [Concomitant]
     Indication: CARDIAC DISORDER
     Dosage: UNK, UNKNOWN
  7. CADUET [Concomitant]
     Indication: BLOOD PRESSURE
     Dosage: UNK, UNKNOWN

REACTIONS (4)
  - FIBROMYALGIA [None]
  - INJECTION SITE HAEMORRHAGE [None]
  - OSTEOARTHRITIS [None]
  - PAIN [None]
